FAERS Safety Report 18091075 (Version 2)
Quarter: 2022Q4

REPORT INFORMATION
  Report Type: Spontaneous
  Country: US (occurrence: US)
  Receive Date: 20200730
  Receipt Date: 20221005
  Transmission Date: 20230112
  Serious: Yes (Other)
  Sender: FDA-Public Use
  Company Number: US-GSKCCFUS-CASE-00761475_AE-44546

PATIENT
  Age: 50 Year
  Sex: Female

DRUGS (2)
  1. BENLYSTA [Suspect]
     Active Substance: BELIMUMAB
     Indication: Lupus nephritis
     Dosage: 1 DF, WE,200MG
     Dates: start: 20200614
  2. DESVENLAFAXINE [Concomitant]
     Active Substance: DESVENLAFAXINE
     Indication: Depression
     Dosage: UNK

REACTIONS (10)
  - Suicidal ideation [Recovered/Resolved]
  - Parosmia [Unknown]
  - Dysgeusia [Not Recovered/Not Resolved]
  - Nausea [Not Recovered/Not Resolved]
  - Depression [Not Recovered/Not Resolved]
  - Headache [Not Recovered/Not Resolved]
  - Dizziness [Unknown]
  - Injection site pain [Unknown]
  - Decreased appetite [Unknown]
  - Injection site rash [Unknown]

NARRATIVE: CASE EVENT DATE: 20200704
